FAERS Safety Report 7273542-1 (Version None)
Quarter: 2011Q1

REPORT INFORMATION
  Report Type: 
  Country: None (occurrence: None)
  Receive Date: 20110203
  Receipt Date: 20101021
  Transmission Date: 20110831
  Serious: No
  Sender: FDA-Public Use
  Company Number: US-ABBOTT-10P-163-0672783-00

PATIENT
  Sex: Female

DRUGS (3)
  1. VITAMIN D [Concomitant]
     Indication: PRODUCT USED FOR UNKNOWN INDICATION
  2. ASPIRIN [Concomitant]
     Indication: PRODUCT USED FOR UNKNOWN INDICATION
  3. SYNTHROID [Suspect]
     Indication: HYPOTHYROIDISM
     Dosage: 1 HOUR BEFORE BREAKFAST    1 HOUR BEFORE BREAKFAST, DAILY
     Route: 048

REACTIONS (4)
  - FATIGUE [None]
  - ASTHENIA [None]
  - SLUGGISHNESS [None]
  - MUSCULAR WEAKNESS [None]
